FAERS Safety Report 24758346 (Version 1)
Quarter: 2024Q4

REPORT INFORMATION
  Report Type: Spontaneous
  Country: US (occurrence: US)
  Receive Date: 20241220
  Receipt Date: 20241220
  Transmission Date: 20250114
  Serious: No
  Sender: ITALFARMACO SPA
  Company Number: US-ITALFARMACO SPA-2167485

PATIENT
  Age: 20 Year
  Sex: Male
  Weight: 73.01 kg

DRUGS (1)
  1. DUVYZAT [Suspect]
     Active Substance: GIVINOSTAT
     Indication: Duchenne muscular dystrophy
     Dates: start: 20241030

REACTIONS (3)
  - Chromaturia [Unknown]
  - Exercise tolerance decreased [Unknown]
  - Micturition disorder [Unknown]

NARRATIVE: CASE EVENT DATE: 20241108
